FAERS Safety Report 6149979-0 (Version None)
Quarter: 2009Q2

REPORT INFORMATION
  Report Type: 
  Country: None (occurrence: None)
  Receive Date: 20090409
  Receipt Date: 20090402
  Transmission Date: 20091009
  Serious: Yes (Other)
  Sender: FDA-Public Use
  Company Number: A0777779A

PATIENT
  Sex: Female

DRUGS (5)
  1. FLOVENT [Suspect]
  2. BECLOMETHASONE DIPROPIONATE [Suspect]
  3. AZMACORT [Suspect]
  4. QVAR 40 [Suspect]
  5. PULMICORT-100 [Suspect]

REACTIONS (3)
  - ANOSMIA [None]
  - NASAL CONGESTION [None]
  - NASAL MUCOSAL DISCOLOURATION [None]
